FAERS Safety Report 5366838-1 (Version None)
Quarter: 2007Q2

REPORT INFORMATION
  Report Type: 
  Country: None (occurrence: None)
  Receive Date: 20070622
  Receipt Date: 20061012
  Transmission Date: 20071010
  Serious: No
  Sender: FDA-Public Use
  Company Number: US-ASTRAZENECA-2006UW19812

PATIENT
  Sex: Female

DRUGS (1)
  1. RHINOCORT [Suspect]
     Indication: INFLAMMATION
     Route: 045
     Dates: start: 20060901

REACTIONS (2)
  - DIZZINESS [None]
  - TINNITUS [None]
